FAERS Safety Report 4695642-2 (Version None)
Quarter: 2005Q2

REPORT INFORMATION
  Report Type: 
  Country: None (occurrence: None)
  Receive Date: 20050617
  Receipt Date: 20050617
  Transmission Date: 20051028
  Serious: Yes (Other)
  Sender: FDA-Public Use
  Company Number: None

PATIENT
  Sex: Male

DRUGS (2)
  1. NEURONTIN [Suspect]
     Indication: MULTIPLE SCLEROSIS
     Dosage: 300 MG -6 TAB DAILY
  2. NEURONTIN [Suspect]
     Indication: TRIGEMINAL NEURALGIA
     Dosage: 300 MG -6 TAB DAILY

REACTIONS (3)
  - DIARRHOEA [None]
  - MUSCLE SPASMS [None]
  - PHARMACEUTICAL PRODUCT COMPLAINT [None]
